FAERS Safety Report 4858806-0 (Version None)
Quarter: 2005Q4

REPORT INFORMATION
  Report Type: 
  Country: None (occurrence: None)
  Receive Date: 20051219
  Receipt Date: 20051102
  Transmission Date: 20060501
  Serious: No
  Sender: FDA-Public Use
  Company Number: US-GLAXOSMITHKLINE-A0580595A

PATIENT
  Age: 35 Year
  Sex: Female

DRUGS (3)
  1. NICODERM 21MG (RX) [Suspect]
  2. NICORETTE ORANGE OTC 4MG [Suspect]
     Dates: start: 20051101
  3. NICORETTE [Suspect]
     Dates: start: 20051101

REACTIONS (2)
  - DRUG INEFFECTIVE [None]
  - DYSPEPSIA [None]
